FAERS Safety Report 10058544 (Version 1)
Quarter: 2014Q2

REPORT INFORMATION
  Report Type: Spontaneous
  Country: NO (occurrence: None)
  Receive Date: 20140402
  Receipt Date: 20140402
  Transmission Date: 20141212
  Serious: Yes (Death)
  Sender: FDA-Public Use
  Company Number: FK201400962

PATIENT
  Age: 53 Year
  Sex: Female

DRUGS (2)
  1. OXALIPLATIN (MANUFACTURER UNKNOWN) (OXALIPLATIN) (OXALIPLATIN) [Suspect]
     Indication: COLON CANCER STAGE III
     Route: 042
     Dates: start: 20131120, end: 20140115
  2. FLUOROURACIL (FLUOROURACIL) (FLUOROURACIL) [Suspect]
     Indication: COLON CANCER STAGE III
     Route: 042
     Dates: start: 20131120, end: 20140115

REACTIONS (5)
  - Multi-organ failure [None]
  - Septic shock [None]
  - Disseminated intravascular coagulation [None]
  - Neutropenia [None]
  - Thrombocytopenia [None]
